FAERS Safety Report 13689986 (Version 1)
Quarter: 2017Q2

REPORT INFORMATION
  Report Type: Report from Study
  Country: CA (occurrence: CA)
  Receive Date: 20170626
  Receipt Date: 20170626
  Transmission Date: 20170830
  Serious: Yes (Death, Hospitalization, Other)
  Sender: FDA-Public Use
  Company Number: PHHY2017CA059372

PATIENT
  Age: 64 Year
  Sex: Female
  Weight: 70.9 kg

DRUGS (3)
  1. HYDREA [Concomitant]
     Active Substance: HYDROXYUREA
     Indication: ACUTE MYELOID LEUKAEMIA
     Dosage: 1 G, BID
     Route: 065
     Dates: start: 20170615
  2. HYDREA [Concomitant]
     Active Substance: HYDROXYUREA
     Dosage: 2 G, BID
     Route: 065
  3. PKC412 [Suspect]
     Active Substance: MIDOSTAURIN
     Indication: ACUTE MYELOID LEUKAEMIA
     Dosage: 50 MG, QD
     Route: 048
     Dates: start: 20170324

REACTIONS (15)
  - Nausea [Recovered/Resolved]
  - Leukostasis syndrome [Unknown]
  - Acute coronary syndrome [Unknown]
  - Lung infiltration [Unknown]
  - Respiratory failure [Fatal]
  - Decreased appetite [Unknown]
  - Body temperature increased [Unknown]
  - White blood cell count increased [Unknown]
  - Vomiting [Recovered/Resolved]
  - Diarrhoea [Recovered/Resolved]
  - Acute myeloid leukaemia recurrent [Unknown]
  - Arthralgia [Unknown]
  - Somnolence [Unknown]
  - Atrial fibrillation [Unknown]
  - General physical health deterioration [Unknown]

NARRATIVE: CASE EVENT DATE: 20170325
